FAERS Safety Report 6947076-5 (Version None)
Quarter: 2010Q3

REPORT INFORMATION
  Report Type: 
  Country: None (occurrence: None)
  Receive Date: 20100827
  Receipt Date: 20090825
  Transmission Date: 20110219
  Serious: No
  Sender: FDA-Public Use
  Company Number: US-ABBOTT-09P-163-0593443-00

PATIENT
  Sex: Male
  Weight: 65.83 kg

DRUGS (4)
  1. NIASPAN [Suspect]
     Indication: COMPUTERISED TOMOGRAM CORONARY ARTERY ABNORMAL
     Dosage: NIGHTLY
     Dates: start: 20090815
  2. ASPIRIN [Concomitant]
     Indication: PRODUCT USED FOR UNKNOWN INDICATION
     Dosage: TAKES 2ND HALF WITH FLUSHING SOMETIMES
  3. FOLIC ACID [Concomitant]
     Indication: PRODUCT USED FOR UNKNOWN INDICATION
  4. FISH OIL [Concomitant]
     Indication: PRODUCT USED FOR UNKNOWN INDICATION

REACTIONS (3)
  - FEELING HOT [None]
  - FLUSHING [None]
  - PARAESTHESIA [None]
